FAERS Safety Report 6059539-8 (Version None)
Quarter: 2009Q1

REPORT INFORMATION
  Report Type: 
  Country: None (occurrence: None)
  Receive Date: 20090130
  Receipt Date: 20090128
  Transmission Date: 20090719
  Serious: Yes (Death, Disabling)
  Sender: FDA-Public Use
  Company Number: US-ASTRAZENECA-2007UW08723

PATIENT
  Age: 52 Year
  Sex: Female
  Weight: 95.3 kg

DRUGS (3)
  1. SEROQUEL [Suspect]
     Indication: MENTAL DISORDER
     Route: 048
     Dates: start: 20040301, end: 20040901
  2. SEROQUEL [Suspect]
     Dosage: 100-200MG
     Route: 048
     Dates: start: 20050201, end: 20051201
  3. SEROQUEL [Suspect]
     Route: 048
     Dates: start: 20051201, end: 20061210

REACTIONS (2)
  - DEATH [None]
  - DIABETES MELLITUS [None]
